FAERS Safety Report 5258606-6 (Version None)
Quarter: 2007Q1

REPORT INFORMATION
  Report Type: 
  Country: None (occurrence: None)
  Receive Date: 20070308
  Receipt Date: 20070305
  Transmission Date: 20070707
  Serious: Yes (Hospitalization)
  Sender: FDA-Public Use
  Company Number: PHNR2007AU00769

PATIENT
  Age: 64 Year
  Sex: Female

DRUGS (6)
  1. VOLTAREN [Suspect]
     Dosage: 75MG DAILY
     Route: 048
     Dates: start: 20060915, end: 20061016
  2. PLAVIX [Suspect]
     Dosage: 75 MG DAILY
     Route: 048
     Dates: start: 20060415
  3. PROVERA [Concomitant]
     Indication: MENOPAUSAL SYMPTOMS
     Dosage: 5MG DAILY
     Route: 048
     Dates: start: 20060415
  4. PREMARIN [Concomitant]
     Indication: MENOPAUSAL SYMPTOMS
     Dosage: 0.6MG DAILY
     Route: 048
     Dates: start: 20060415
  5. PANTOPRAZOLE SODIUM [Concomitant]
     Indication: PROPHYLAXIS
     Dosage: 20 MG DAILY
     Route: 048
     Dates: start: 20060915, end: 20061016
  6. SOLPRIN [Suspect]
     Dosage: 300MG DAILY
     Route: 048
     Dates: start: 20050314

REACTIONS (6)
  - DUODENAL ULCER HAEMORRHAGE [None]
  - ENDOSCOPY UPPER GASTROINTESTINAL TRACT [None]
  - EPISTAXIS [None]
  - GASTRIC HAEMORRHAGE [None]
  - GASTRITIS EROSIVE [None]
  - MELAENA [None]
